FAERS Safety Report 9529180 (Version 1)
Quarter: 2013Q3

REPORT INFORMATION
  Report Type: Not Available
  Country: US (occurrence: US)
  Receive Date: 20130916
  Receipt Date: 20130916
  Transmission Date: 20140515
  Serious: No
  Sender: FDA-Public Use
  Company Number: US-LUNDBECK-DKLU1089320

PATIENT
  Sex: Female

DRUGS (3)
  1. ONFI [Suspect]
     Indication: EPILEPSY
     Route: 048
  2. DIVALPROATE [Concomitant]
     Indication: PRODUCT USED FOR UNKNOWN INDICATION
  3. KEPPRA [Concomitant]
     Indication: PRODUCT USED FOR UNKNOWN INDICATION

REACTIONS (3)
  - Excessive eye blinking [Unknown]
  - Dyskinesia [Unknown]
  - Sluggishness [Unknown]
